FAERS Safety Report 14675567 (Version 1)
Quarter: 2018Q1

REPORT INFORMATION
  Report Type: Spontaneous
  Country: ZA (occurrence: ZA)
  Receive Date: 20180323
  Receipt Date: 20180323
  Transmission Date: 20180509
  Serious: Yes (Death)
  Sender: FDA-Public Use
  Company Number: ZA-MYLANLABS-2018M1019326

PATIENT
  Age: 73 Year
  Sex: Female

DRUGS (6)
  1. PEPLOC                             /00550802/ [Suspect]
     Active Substance: RANITIDINE HYDROCHLORIDE
     Indication: ULCER
     Dosage: 40 MG, UNK
     Dates: start: 20171101
  2. ULTIPOT [Suspect]
     Active Substance: POTASSIUM CHLORIDE
     Indication: PRODUCT USED FOR UNKNOWN INDICATION
     Dosage: 600 MG, UNK
     Dates: start: 20171101
  3. SPIRACTIN                          /00006201/ [Suspect]
     Active Substance: SPIRONOLACTONE
     Indication: HYPERTENSION
     Dosage: 25 MG, UNK
     Dates: start: 20171101
  4. BE-TABS PREDNISONE [Suspect]
     Active Substance: PREDNISONE
     Indication: PRODUCT USED FOR UNKNOWN INDICATION
     Dosage: 5 MG, UNK
     Dates: start: 20171101
  5. MYLAN FUROSEMIDE 40 [Suspect]
     Active Substance: FUROSEMIDE
     Indication: DIURETIC THERAPY
     Dosage: 40 MG, UNK
     Dates: start: 20171101
  6. LAXETTE /00142201/ [Suspect]
     Active Substance: SENNA LEAF
     Indication: PRODUCT USED FOR UNKNOWN INDICATION
     Dosage: 3.3 G, UNK
     Dates: start: 20171101

REACTIONS (1)
  - Death [Fatal]
